FAERS Safety Report 16847628 (Version 2)
Quarter: 2019Q4

REPORT INFORMATION
  Report Type: Other
  Country: US (occurrence: US)
  Receive Date: 20190924
  Receipt Date: 20191222
  Transmission Date: 20200122
  Serious: No
  Sender: FDA-Public Use
  Company Number: US-ACORDA-ACO_160694_2019

PATIENT
  Age: 78 Year
  Sex: Female

DRUGS (4)
  1. MIRAPEX [Concomitant]
     Active Substance: PRAMIPEXOLE DIHYDROCHLORIDE
     Indication: PRODUCT USED FOR UNKNOWN INDICATION
     Dosage: UNK
     Route: 065
  2. INBRIJA [Suspect]
     Active Substance: LEVODOPA
     Indication: PARKINSON^S DISEASE
     Dosage: 42 MILLIGRAM, PRN, 2 CAPSULES
     Dates: start: 20190802, end: 20190816
  3. SINEMET [Concomitant]
     Active Substance: CARBIDOPA\LEVODOPA
     Indication: PRODUCT USED FOR UNKNOWN INDICATION
     Dosage: UNK
     Route: 065
  4. STALEVO [Concomitant]
     Active Substance: CARBIDOPA\ENTACAPONE\LEVODOPA
     Indication: PRODUCT USED FOR UNKNOWN INDICATION
     Dosage: UNK
     Route: 065

REACTIONS (10)
  - Pruritus [Recovered/Resolved]
  - Nasal dryness [Recovered/Resolved]
  - Stress [Unknown]
  - Saliva discolouration [Recovered/Resolved]
  - Confusional state [Unknown]
  - Ocular hyperaemia [Recovered/Resolved]
  - Eye pruritus [Recovered/Resolved]
  - Dyspnoea [Recovered/Resolved]
  - Incorrect route of product administration [Unknown]
  - Foreign body in respiratory tract [Unknown]

NARRATIVE: CASE EVENT DATE: 2019
